FAERS Safety Report 9929951 (Version 1)
Quarter: 2014Q1

REPORT INFORMATION
  Report Type: Spontaneous
  Country: US (occurrence: US)
  Receive Date: 20140227
  Receipt Date: 20140227
  Transmission Date: 20141002
  Serious: Yes (Hospitalization)
  Sender: FDA-Public Use
  Company Number: PHHY2014US023698

PATIENT
  Age: 56 Year
  Sex: Male

DRUGS (2)
  1. PARACETAMOL [Suspect]
     Indication: PAIN
     Dosage: 2 DF, Q4H
  2. HYDROCODONE BITARTRATE AND ACETAMINOPHEN [Suspect]
     Indication: PAIN
     Dosage: 1 DF, Q4H
     Route: 048

REACTIONS (6)
  - Hepatotoxicity [Recovered/Resolved]
  - Decreased appetite [Recovered/Resolved]
  - Nausea [Recovered/Resolved]
  - Vomiting [Recovered/Resolved]
  - Abdominal pain [Recovered/Resolved]
  - Accidental overdose [Unknown]
